FAERS Safety Report 10705131 (Version 2)
Quarter: 2015Q1

REPORT INFORMATION
  Report Type: Spontaneous
  Country: SG (occurrence: SG)
  Receive Date: 20150112
  Receipt Date: 20150123
  Transmission Date: 20150721
  Serious: Yes (Other)
  Sender: FDA-Public Use
  Company Number: SG-BAYER-2015-001209

PATIENT
  Sex: Male
  Weight: 78 kg

DRUGS (7)
  1. XOFIGO [Suspect]
     Active Substance: RADIUM RA-223 DICHLORIDE
     Dosage: 50KBQ/KG
     Route: 042
     Dates: start: 20140723, end: 20140723
  2. XOFIGO [Suspect]
     Active Substance: RADIUM RA-223 DICHLORIDE
     Dosage: 50KBQ/KG
     Route: 042
     Dates: start: 20140526, end: 20140526
  3. XOFIGO [Suspect]
     Active Substance: RADIUM RA-223 DICHLORIDE
     Dosage: 50KBQ/KG
     Route: 042
     Dates: start: 20140623, end: 20140623
  4. XOFIGO [Suspect]
     Active Substance: RADIUM RA-223 DICHLORIDE
     Dosage: 50KBQ/KG
     Route: 042
     Dates: start: 20141016, end: 20141016
  5. ZOLADEX [Concomitant]
     Active Substance: GOSERELIN ACETATE
  6. XOFIGO [Suspect]
     Active Substance: RADIUM RA-223 DICHLORIDE
     Dosage: 50KBQ/KG
     Route: 042
     Dates: start: 20140918, end: 20140918
  7. XOFIGO [Suspect]
     Active Substance: RADIUM RA-223 DICHLORIDE
     Dosage: 50KBQ/KG
     Route: 042
     Dates: start: 20140820, end: 20140820

REACTIONS (2)
  - Platelet count decreased [None]
  - Blood urine present [None]
